FAERS Safety Report 4616439-5 (Version None)
Quarter: 2005Q1

REPORT INFORMATION
  Report Type: 
  Country: None (occurrence: None)
  Receive Date: 20050318
  Receipt Date: 20050301
  Transmission Date: 20050727
  Serious: Yes (Death)
  Sender: FDA-Public Use
  Company Number: MED000055

PATIENT
  Age: 52 Year
  Sex: Male

DRUGS (15)
  1. VANCOCIN HCL [Suspect]
     Indication: TOXIC EPIDERMAL NECROLYSIS
  2. TOBRAMYCIN [Concomitant]
  3. ERYTHROMYCIN [Concomitant]
  4. PIPERACILLIN-TOAZOBACTAM [Concomitant]
  5. PANTOPRAZOLE SODIUM [Concomitant]
  6. LORAZEPAM [Concomitant]
  7. MORPHINE [Concomitant]
  8. ALBUTEROL [Concomitant]
  9. IPRATROPIUM BROMIDE [Concomitant]
  10. EPOGEN [Concomitant]
  11. FERROUS SULFATE TAB [Concomitant]
  12. METOCLOPRAMIDE [Concomitant]
  13. INSULIN [Concomitant]
  14. CLONIDINE [Concomitant]
  15. TPN [Concomitant]

REACTIONS (18)
  - ASPIRATION [None]
  - BLADDER DISORDER [None]
  - CHOLESTASIS [None]
  - ENTEROBACTER INFECTION [None]
  - GENERAL PHYSICAL HEALTH DETERIORATION [None]
  - HAEMODIALYSIS [None]
  - HYPOTENSION [None]
  - HYPOXIA [None]
  - LARGE INTESTINE PERFORATION [None]
  - LEUKOCYTOCLASTIC VASCULITIS [None]
  - LEUKOCYTOSIS [None]
  - PERITONITIS [None]
  - RENAL FAILURE ACUTE [None]
  - RIB FRACTURE [None]
  - ROAD TRAFFIC ACCIDENT [None]
  - SPUTUM CULTURE POSITIVE [None]
  - THERAPY NON-RESPONDER [None]
  - TOXIC EPIDERMAL NECROLYSIS [None]
